FAERS Safety Report 4884279-8 (Version None)
Quarter: 2005Q4

REPORT INFORMATION
  Report Type: 
  Country: None (occurrence: None)
  Receive Date: 20051201
  Receipt Date: 20050910
  Transmission Date: 20060501
  Serious: No
  Sender: FDA-Public Use
  Company Number: 2005PV002024

PATIENT
  Age: 59 Year
  Sex: Female
  Weight: 131.5431 kg

DRUGS (5)
  1. BYETTA [Suspect]
     Indication: DIABETES MELLITUS NON-INSULIN-DEPENDENT
     Dosage: 5 MCG; BID; SC
     Route: 058
     Dates: start: 20050901
  2. GLUCOPHATE ^BRISTOL-MYERS SQUIB^ [Concomitant]
  3. LANTUS [Concomitant]
  4. ACTOS [Concomitant]
  5. HUMALOG [Concomitant]

REACTIONS (1)
  - BLOOD GLUCOSE INCREASED [None]
